FAERS Safety Report 5641752-2 (Version None)
Quarter: 2008Q1

REPORT INFORMATION
  Report Type: 
  Country: None (occurrence: None)
  Receive Date: 20080131
  Receipt Date: 20071127
  Transmission Date: 20080703
  Serious: No
  Sender: FDA-Public Use
  Company Number: PHEH2007US14196

PATIENT
  Age: 59 Year
  Sex: Male
  Weight: 79.8 kg

DRUGS (9)
  1. TEKTURNA [Suspect]
     Indication: HYPERTENSION
     Dosage: 150 MG,QD, ORAL
     Route: 048
     Dates: start: 20071004, end: 20071019
  2. ACCUPRIL (QUINAPRIL HYDROCHLORIDE) UNK [Concomitant]
  3. AMLODIPINE BESYLATE (AMLODIPINE BESILATE) UNK TO ONGOING [Concomitant]
  4. PLAVIX (CLOPIDOGREL SULFATE) UNK TO ONGOING [Concomitant]
  5. CRESTOR (ROSUVASTATIN CALCIUM) UNK TO ONGOING [Concomitant]
  6. FOLIC ACID (FOLIC ACID) UNK TO ONGOING [Concomitant]
  7. ASA (ACETYLSALICYLIC ACID) UNK TO ONGOING [Concomitant]
  8. METOPROLOL (METOPROLOL) UNK TO ONGOING [Concomitant]
  9. THIAMINE (THIAMINE) [Concomitant]

REACTIONS (2)
  - ABDOMINAL DISCOMFORT [None]
  - ABDOMINAL DISTENSION [None]
